FAERS Safety Report 8682663 (Version 2)
Quarter: 2013Q1

REPORT INFORMATION
  Report Type: Spontaneous
  Country: US (occurrence: US)
  Receive Date: 20120725
  Receipt Date: 20130313
  Transmission Date: 20140127
  Serious: No
  Sender: FDA-Public Use
  Company Number: US-ASTRAZENECA-2012SE48201

PATIENT
  Age: 88 Year
  Sex: Female
  Weight: 71.2 kg

DRUGS (4)
  1. NEXIUM [Suspect]
     Indication: GASTROOESOPHAGEAL REFLUX DISEASE
     Route: 048
  2. CADUET [Concomitant]
  3. TYLENOL [Concomitant]
  4. VALIUM [Concomitant]

REACTIONS (5)
  - Hypoacusis [Unknown]
  - Body height decreased [Unknown]
  - Malaise [Unknown]
  - Off label use [Unknown]
  - Incorrect dose administered [Unknown]
